FAERS Safety Report 15178330 (Version 1)
Quarter: 2018Q4

REPORT INFORMATION
  Report Type: Spontaneous
  Country: US (occurrence: US)
  Receive Date: 20180721
  Receipt Date: 20180721
  Transmission Date: 20190204
  Serious: No
  Sender: FDA-Public Use
  Company Number: US-ASCENT PHARMACEUTICALS, INC.-2052522

PATIENT

DRUGS (2)
  1. OXYCODONE AND ACETAMINOPHEN [Suspect]
     Active Substance: ACETAMINOPHEN\OXYCODONE HYDROCHLORIDE
     Indication: PAIN
     Route: 048
  2. DULOXETINE. [Concomitant]
     Active Substance: DULOXETINE

REACTIONS (9)
  - Malaise [Unknown]
  - Nausea [Unknown]
  - Drug ineffective [Unknown]
  - Headache [Unknown]
  - Paraesthesia [Unknown]
  - Gastrointestinal tract irritation [Unknown]
  - Vomiting [Unknown]
  - Dyspepsia [Unknown]
  - Feeling jittery [Unknown]
